FAERS Safety Report 10010594 (Version 1)
Quarter: 2014Q1

REPORT INFORMATION
  Report Type: Spontaneous
  Country: US (occurrence: None)
  Receive Date: 20140312
  Receipt Date: 20140312
  Transmission Date: 20141002
  Serious: Yes (Hospitalization)
  Sender: FDA-Public Use
  Company Number: None

PATIENT
  Age: 87 Year
  Sex: Male
  Weight: 58.2 kg

DRUGS (9)
  1. XARELTO [Suspect]
     Indication: ATRIAL FIBRILLATION
     Route: 048
     Dates: start: 20140126, end: 20140219
  2. ASPIRIN [Concomitant]
  3. TAMSULOSIN [Concomitant]
  4. ATORVASTATIN [Concomitant]
  5. FERROUS SULFATE [Concomitant]
  6. LASIX [Concomitant]
  7. OMEPRAZOLE [Concomitant]
  8. BUDESONIDE [Concomitant]
  9. IPRATROPIUM [Concomitant]

REACTIONS (2)
  - Anaemia [None]
  - Gastritis haemorrhagic [None]
